FAERS Safety Report 6837027-6 (Version None)
Quarter: 2010Q3

REPORT INFORMATION
  Report Type: 
  Country: None (occurrence: None)
  Receive Date: 20100713
  Receipt Date: 20070427
  Transmission Date: 20110219
  Serious: No
  Sender: FDA-Public Use
  Company Number: US-PFIZER INC-2007035366

PATIENT
  Sex: Male
  Weight: 86.363 kg

DRUGS (9)
  1. CHANTIX [Suspect]
     Indication: SMOKING CESSATION THERAPY
     Dates: start: 20070401
  2. ATENOLOL [Concomitant]
  3. PROTONIX [Concomitant]
  4. LEXAPRO [Concomitant]
  5. PLAVIX [Concomitant]
  6. TRAZODONE HYDROCHLORIDE [Concomitant]
  7. VYTORIN [Concomitant]
  8. TRICOR [Concomitant]
  9. ALPRAZOLAM [Concomitant]

REACTIONS (3)
  - ASTHENIA [None]
  - DIZZINESS [None]
  - FATIGUE [None]
